FAERS Safety Report 20911209 (Version 1)
Quarter: 2022Q2

REPORT INFORMATION
  Report Type: Spontaneous
  Country: HR (occurrence: HR)
  Receive Date: 20220603
  Receipt Date: 20220603
  Transmission Date: 20220721
  Serious: Yes (Other)
  Sender: FDA-Public Use
  Company Number: None

PATIENT
  Age: 16 Year
  Sex: Female

DRUGS (2)
  1. RISPERIDONE [Suspect]
     Active Substance: RISPERIDONE
     Dosage: 200MG, FREQUENCY TIME 1DAYS, DURATION 1DAYS
     Route: 048
     Dates: start: 20220422, end: 20220422
  2. QUETIAPINE [Suspect]
     Active Substance: QUETIAPINE
     Dosage: 200MG, FREQUENCY TIME 1DAYS, DURATION 1DAYS
     Route: 048
     Dates: start: 20220422, end: 20220422

REACTIONS (3)
  - Somnolence [Unknown]
  - Suicide attempt [Unknown]
  - Intentional overdose [Unknown]

NARRATIVE: CASE EVENT DATE: 20220422
